FAERS Safety Report 10281741 (Version 3)
Quarter: 2014Q3

REPORT INFORMATION
  Report Type: Spontaneous
  Country: DZ (occurrence: DZ)
  Receive Date: 20140707
  Receipt Date: 20140829
  Transmission Date: 20150326
  Serious: Yes (Death)
  Sender: FDA-Public Use
  Company Number: DZ-SA-2014SA088191

PATIENT
  Age: 42 Year
  Sex: Male

DRUGS (6)
  1. FLUOROURACILE [Concomitant]
     Active Substance: FLUOROURACIL
     Indication: PHARYNGEAL CANCER
     Dosage: ROUTE: PERF
     Dates: start: 20131110, end: 20131111
  2. ZOPHREN [Concomitant]
     Active Substance: ONDANSETRON
     Indication: NAUSEA
     Route: 048
     Dates: start: 20131110, end: 20131113
  3. ZOPHREN [Concomitant]
     Active Substance: ONDANSETRON
     Indication: VOMITING
     Route: 048
     Dates: start: 20131110, end: 20131113
  4. SOLU-MEDROL [Concomitant]
     Active Substance: METHYLPREDNISOLONE SODIUM SUCCINATE
     Dosage: ROUTE: PERF
  5. CISPLATINE [Concomitant]
     Active Substance: CISPLATIN
     Indication: PHARYNGEAL CANCER
     Dosage: ROUTE: PERF
     Dates: start: 20131110, end: 20131111
  6. TAXOTERE [Suspect]
     Active Substance: DOCETAXEL
     Indication: PHARYNGEAL CANCER
     Dosage: ROUTE: PERF
     Dates: start: 20131110, end: 20131111

REACTIONS (1)
  - Myocardial infarction [Fatal]

NARRATIVE: CASE EVENT DATE: 20131113
